FAERS Safety Report 8256236-5 (Version None)
Quarter: 2012Q1

REPORT INFORMATION
  Report Type: 
  Country: None (occurrence: None)
  Receive Date: 20120330
  Receipt Date: 20120320
  Transmission Date: 20120608
  Serious: Yes (Disabling)
  Sender: FDA-Public Use
  Company Number: 2012MA003885

PATIENT
  Age: 67 Year
  Sex: Male

DRUGS (16)
  1. CARVEDILOL [Concomitant]
  2. BUDESONIDE [Concomitant]
  3. LANSOPRAZOLE [Concomitant]
  4. IBUPROFEN [Concomitant]
  5. NAPROXEN [Suspect]
     Dates: start: 20120309
  6. FUROSEMIDE [Concomitant]
  7. RAMIPRIL [Concomitant]
  8. CLONAZEPAM [Concomitant]
  9. ASPIRIN [Concomitant]
  10. SPIRONOLACTONE [Concomitant]
  11. ALBUTEROL [Concomitant]
  12. COLCHICINE [Concomitant]
  13. TIOTROPIUM BROMIDE [Concomitant]
  14. DIGOXIN [Concomitant]
  15. SIMVASTATIN [Concomitant]
  16. DOTHIEPIN HYDROCHLORIDE [Concomitant]

REACTIONS (2)
  - ASTHMA [None]
  - CONDITION AGGRAVATED [None]
